FAERS Safety Report 12259833 (Version 1)
Quarter: 2016Q2

REPORT INFORMATION
  Report Type: Spontaneous
  Country: US (occurrence: US)
  Receive Date: 20160412
  Receipt Date: 20160412
  Transmission Date: 20160815
  Serious: No
  Sender: FDA-Public Use
  Company Number: US-SA-2015SA133037

PATIENT
  Age: 79 Year
  Sex: Male

DRUGS (1)
  1. ALLEGRA [Suspect]
     Active Substance: FEXOFENADINE HYDROCHLORIDE
     Route: 048
     Dates: start: 20150826, end: 20150827

REACTIONS (3)
  - Diarrhoea [Unknown]
  - Off label use [Unknown]
  - Abdominal discomfort [Unknown]
